FAERS Safety Report 13893717 (Version 2)
Quarter: 2017Q3

REPORT INFORMATION
  Report Type: Report from Study
  Country: BR (occurrence: BR)
  Receive Date: 20170822
  Receipt Date: 20170823
  Transmission Date: 20171127
  Serious: Yes (Other)
  Sender: FDA-Public Use
  Company Number: BR-JNJFOC-20170816715

PATIENT
  Sex: Female
  Weight: 63 kg

DRUGS (5)
  1. ROSUVASTATIN. [Concomitant]
     Active Substance: ROSUVASTATIN
     Route: 065
  2. GLIFAGE [Concomitant]
     Active Substance: METFORMIN HYDROCHLORIDE
     Route: 065
  3. NAPRIX [Concomitant]
     Active Substance: RAMIPRIL
     Route: 065
  4. SIMPONI [Suspect]
     Active Substance: GOLIMUMAB
     Indication: RHEUMATOID ARTHRITIS
     Route: 058
     Dates: start: 20161227
  5. PROTOS [Concomitant]
     Route: 065

REACTIONS (4)
  - Neoplasm malignant [Unknown]
  - Weight increased [Unknown]
  - Injection site discolouration [Unknown]
  - Occult blood [Unknown]

NARRATIVE: CASE EVENT DATE: 2017
